FAERS Safety Report 22085182 (Version 3)
Quarter: 2025Q2

REPORT INFORMATION
  Report Type: Spontaneous
  Country: US (occurrence: US)
  Receive Date: 20230310
  Receipt Date: 20250418
  Transmission Date: 20250717
  Serious: No
  Sender: PFIZER
  Company Number: US-PFIZER INC-PV202300020327

PATIENT
  Age: 72 Year
  Sex: Female

DRUGS (3)
  1. IBRANCE [Suspect]
     Active Substance: PALBOCICLIB
  2. IBRANCE [Suspect]
     Active Substance: PALBOCICLIB
     Dosage: 75 MG, 1X/DAY (NOT A BREAK IN DOSING)
  3. IBRANCE [Suspect]
     Active Substance: PALBOCICLIB
     Dates: end: 202503

REACTIONS (2)
  - White blood cell count decreased [Unknown]
  - Off label use [Unknown]
